FAERS Safety Report 8581596-5 (Version None)
Quarter: 2012Q3

REPORT INFORMATION
  Report Type: 
  Country: None (occurrence: None)
  Receive Date: 20120809
  Receipt Date: 20120802
  Transmission Date: 20120928
  Serious: Yes (Hospitalization, Other)
  Sender: FDA-Public Use
  Company Number: FR-ASTELLAS-2011EU005602

PATIENT
  Age: 54 Year
  Sex: Male
  Weight: 68 kg

DRUGS (5)
  1. TACROLIMUS [Interacting]
     Dosage: 1 MG, UNKNOWN/D
     Route: 065
     Dates: end: 20111117
  2. PROGRAF [Suspect]
     Indication: LIVER TRANSPLANT
     Dosage: UNK MG, UID/QD
     Route: 065
     Dates: start: 20070101
  3. PROGRAF [Interacting]
     Indication: RENAL TRANSPLANT
     Dosage: 2 MG, UID/QD
     Dates: start: 20110808
  4. TACROLIMUS [Interacting]
     Dosage: 2 MG, UNKNOWN/D
     Route: 065
  5. CORTICOSTEROID NOS [Concomitant]
     Dosage: 10 MG, UNKNOWN/D
     Route: 065

REACTIONS (5)
  - OVERDOSE [None]
  - DRUG LEVEL CHANGED [None]
  - TREMOR [None]
  - DRUG ADMINISTRATION ERROR [None]
  - DRUG INTERACTION [None]
